FAERS Safety Report 8329193-0 (Version None)
Quarter: 2012Q2

REPORT INFORMATION
  Report Type: 
  Country: None (occurrence: None)
  Receive Date: 20120502
  Receipt Date: 20110627
  Transmission Date: 20120825
  Serious: No
  Sender: FDA-Public Use
  Company Number: US-ASTRAZENECA-2011SE38661

PATIENT
  Age: 66 Year
  Sex: Female

DRUGS (3)
  1. WATER PILL [Concomitant]
  2. FASLODEX [Suspect]
     Indication: BREAST CANCER
     Dosage: 500 MG IN EACH BUTTOCKS
     Route: 030
     Dates: start: 20110623
  3. OXYCODONE HCL [Concomitant]
     Indication: PAIN

REACTIONS (5)
  - JOINT SWELLING [None]
  - MEMORY IMPAIRMENT [None]
  - ABASIA [None]
  - PAIN IN EXTREMITY [None]
  - OEDEMA PERIPHERAL [None]
